FAERS Safety Report 21579864 (Version 1)
Quarter: 2022Q4

REPORT INFORMATION
  Report Type: Spontaneous
  Country: CA (occurrence: CA)
  Receive Date: 20221110
  Receipt Date: 20221110
  Transmission Date: 20230113
  Serious: Yes (Hospitalization, Other)
  Sender: FDA-Public Use
  Company Number: CA-PFIZER INC-202201287252

PATIENT
  Age: 21 Year
  Sex: Female

DRUGS (6)
  1. XELJANZ [Suspect]
     Active Substance: TOFACITINIB CITRATE
     Indication: Colitis ulcerative
     Dosage: 10 MG, 3X/DAY (TID FOR THREE DAYS)
     Route: 048
     Dates: start: 2022, end: 2022
  2. XELJANZ [Suspect]
     Active Substance: TOFACITINIB CITRATE
     Dosage: 10 MG, 2X/DAY (REDUCED THE DOSE TO BID)
     Route: 048
     Dates: start: 202211
  3. GRAVOL [Concomitant]
     Active Substance: DIMENHYDRINATE
     Dosage: UNK
  4. HYDROCORTISONE [Concomitant]
     Active Substance: HYDROCORTISONE
     Dosage: UNK
  5. PREDNISONE [Concomitant]
     Active Substance: PREDNISONE
     Dosage: 40 MG, (40 MG X 14 DAYS, SLOW TAPER OFF AT 2.5 MG WEEKLY)
  6. STELARA [Concomitant]
     Active Substance: USTEKINUMAB
     Dosage: UNK, (SINGLE DOSE)

REACTIONS (6)
  - Haematochezia [Recovered/Resolved]
  - Bowel movement irregularity [Recovered/Resolved]
  - Mucous stools [Unknown]
  - Off label use [Unknown]
  - Nausea [Unknown]
  - Weight increased [Unknown]

NARRATIVE: CASE EVENT DATE: 20220101
